FAERS Safety Report 8539009-5 (Version None)
Quarter: 2012Q3

REPORT INFORMATION
  Report Type: 
  Country: None (occurrence: None)
  Receive Date: 20120726
  Receipt Date: 20120723
  Transmission Date: 20120928
  Serious: Yes (Other)
  Sender: FDA-Public Use
  Company Number: PHEH2012US013948

PATIENT
  Sex: Male
  Weight: 176.87 kg

DRUGS (22)
  1. VITAMIN B6 [Concomitant]
  2. NAPROXEN [Concomitant]
  3. ASCORBIC ACID [Concomitant]
     Dosage: 1000 MG, DAILY
     Route: 048
  4. MAGNESIUM SULFATE [Concomitant]
  5. ZOMETA [Suspect]
     Dosage: 4 MG, EVERY 4 WEEK
     Route: 042
     Dates: end: 20120711
  6. LOTREL [Concomitant]
     Dosage: 5-40 MG, DAILY
     Route: 048
  7. SPIRIVA [Concomitant]
     Dosage: 18 UG, DAILY
  8. ZINC SULFATE [Concomitant]
  9. ZOMETA [Suspect]
     Dosage: 4 MG, QMO
     Route: 042
     Dates: start: 20120710, end: 20120710
  10. ASPIRIN [Concomitant]
  11. GINKGO BILOBA [Concomitant]
     Dosage: 60 MG, DAILY
     Route: 048
  12. LASIX [Concomitant]
     Dosage: 20 MG, BID
     Route: 048
  13. FLONASE [Concomitant]
  14. VITAMIN E [Concomitant]
     Dosage: 400 U, DAILY
     Route: 048
  15. FLOMAX [Concomitant]
     Dosage: 0.4 MG, DAILY
     Route: 048
  16. OXYGEN [Concomitant]
  17. COLECALCIFEROL [Concomitant]
     Dosage: 50000 U, QW
     Route: 048
  18. KETOROLAC TROMETHAMINE [Concomitant]
     Dosage: 30 MG, UNK
     Route: 042
     Dates: start: 20120711, end: 20120711
  19. ZOMETA [Suspect]
     Indication: METASTASES TO BONE
     Dosage: 4 MG, EVERY 4 WEEK
     Route: 042
     Dates: start: 20120613
  20. AVODART [Concomitant]
     Dosage: 0.5 MG, DAILY
     Route: 048
  21. ASPIRIN [Concomitant]
     Dosage: 81 MG, DAILY
     Route: 048
  22. BICALUTAMIDE [Concomitant]
     Dosage: 50 MG, DAILY
     Route: 048

REACTIONS (5)
  - CHEST PAIN [None]
  - HYPERTENSION [None]
  - PLEURISY [None]
  - INFLUENZA LIKE ILLNESS [None]
  - VISCERAL PAIN [None]
